FAERS Safety Report 18464801 (Version 1)
Quarter: 2020Q4

REPORT INFORMATION
  Report Type: Spontaneous
  Country: ES (occurrence: ES)
  Receive Date: 20201104
  Receipt Date: 20201104
  Transmission Date: 20210114
  Serious: Yes (Hospitalization, Other)
  Sender: FDA-Public Use
  Company Number: ES-ELI_LILLY_AND_COMPANY-ES202011001637

PATIENT
  Age: 63 Year
  Sex: Male

DRUGS (1)
  1. BARICITINIB. [Suspect]
     Active Substance: BARICITINIB
     Indication: DERMATITIS ATOPIC
     Dosage: UNK UNK, UNKNOWN
     Route: 065
     Dates: start: 201905

REACTIONS (3)
  - Cellulitis [Unknown]
  - Immunosuppression [Recovered/Resolved]
  - Impaired healing [Unknown]

NARRATIVE: CASE EVENT DATE: 202009
